FAERS Safety Report 4843781-5 (Version None)
Quarter: 2005Q4

REPORT INFORMATION
  Report Type: 
  Country: None (occurrence: None)
  Receive Date: 20051202
  Receipt Date: 20051122
  Transmission Date: 20060501
  Serious: Yes (Hospitalization)
  Sender: FDA-Public Use
  Company Number: JP-JNJFOC-20051105663

PATIENT
  Sex: Female
  Weight: 48 kg

DRUGS (18)
  1. REMICADE [Suspect]
     Indication: CROHN'S DISEASE
     Route: 042
  2. LEUKERIN [Concomitant]
     Indication: CROHN'S DISEASE
     Route: 048
  3. PENTASA [Concomitant]
     Indication: CROHN'S DISEASE
     Route: 048
  4. ALFAROL [Concomitant]
     Route: 048
  5. EPADEL [Concomitant]
     Route: 048
  6. ENTERONON-R [Concomitant]
     Route: 048
  7. ENTERONON-R [Concomitant]
     Route: 048
  8. ENTERONON-R [Concomitant]
     Route: 048
  9. ENTERONON-R [Concomitant]
     Route: 048
  10. ENTERONON-R [Concomitant]
     Route: 048
  11. HYPEN [Concomitant]
     Route: 048
  12. GASTER [Concomitant]
     Route: 048
  13. MINOCYCLINE HCL [Concomitant]
     Route: 048
  14. WARFARIN [Concomitant]
     Route: 048
  15. LENDORMIN [Concomitant]
     Route: 048
  16. FERROMIA [Concomitant]
     Route: 048
  17. GATIFLO [Concomitant]
     Route: 048
  18. PANSPORIN [Concomitant]
     Route: 042

REACTIONS (1)
  - CANDIDA SEPSIS [None]
